FAERS Safety Report 17428370 (Version 1)
Quarter: 2020Q1

REPORT INFORMATION
  Report Type: Spontaneous
  Country: IT (occurrence: IT)
  Receive Date: 20200217
  Receipt Date: 20200217
  Transmission Date: 20200409
  Serious: Yes (Death, Other)
  Sender: FDA-Public Use
  Company Number: IT-FRESENIUS KABI-FK202001532

PATIENT
  Age: 40 Year
  Sex: Male

DRUGS (20)
  1. CLOZAPINE. [Suspect]
     Active Substance: CLOZAPINE
     Route: 048
  2. HALOPERIDOL. [Suspect]
     Active Substance: HALOPERIDOL
     Indication: PRODUCT USED FOR UNKNOWN INDICATION
     Route: 048
  3. MIDAZOLAM (MANUFACTURER UNKNOWN) [Suspect]
     Active Substance: MIDAZOLAM HYDROCHLORIDE
     Indication: AGITATION
     Route: 042
  4. HALOPERIDOL INJECTION (MANUFACTURER UNKNOWN) [Suspect]
     Active Substance: HALOPERIDOL LACTATE
     Indication: AGITATION
     Route: 042
  5. DELORAZEPAM [Suspect]
     Active Substance: DELORAZEPAM
     Route: 048
  6. PROMAZINE [Suspect]
     Active Substance: PROMAZINE
     Indication: AGITATION
     Route: 065
  7. VALPROATE SODIUM. [Suspect]
     Active Substance: VALPROATE SODIUM
     Indication: INSOMNIA
     Route: 048
  8. MIDAZOLAM (MANUFACTURER UNKNOWN) [Suspect]
     Active Substance: MIDAZOLAM HYDROCHLORIDE
     Indication: INSOMNIA
     Route: 042
  9. CLOTIAPINE [Suspect]
     Active Substance: CLOTHIAPINE
     Indication: INSOMNIA
     Route: 030
  10. CLOZAPINE. [Suspect]
     Active Substance: CLOZAPINE
     Route: 048
  11. DELORAZEPAM [Suspect]
     Active Substance: DELORAZEPAM
     Indication: AGITATION
     Route: 042
  12. CHLORPROMAZINE. [Suspect]
     Active Substance: CHLORPROMAZINE
     Route: 030
  13. CLOZAPINE. [Suspect]
     Active Substance: CLOZAPINE
     Indication: AGITATION
     Route: 048
  14. DELORAZEPAM [Suspect]
     Active Substance: DELORAZEPAM
     Route: 030
  15. CHLORPHENAMINE MALEATE [Suspect]
     Active Substance: CHLORPHENIRAMINE MALEATE
     Indication: AGITATION
     Route: 042
  16. CLOTIAPINE [Suspect]
     Active Substance: CLOTHIAPINE
     Indication: AGITATION
     Route: 030
  17. VALPROATE SODIUM. [Suspect]
     Active Substance: VALPROATE SODIUM
     Indication: AGITATION
     Route: 048
  18. PROMAZINE [Suspect]
     Active Substance: PROMAZINE
     Indication: INSOMNIA
     Route: 048
  19. CHLORPROMAZINE. [Suspect]
     Active Substance: CHLORPROMAZINE
     Indication: AGITATION
     Route: 042
  20. HALOPERIDOL. [Suspect]
     Active Substance: HALOPERIDOL
     Route: 048

REACTIONS (3)
  - Head injury [Not Recovered/Not Resolved]
  - Fall [Not Recovered/Not Resolved]
  - Sudden death [Fatal]
